FAERS Safety Report 21449834 (Version 1)
Quarter: 2022Q4

REPORT INFORMATION
  Report Type: Spontaneous
  Country: US (occurrence: None)
  Receive Date: 20221011
  Receipt Date: 20221011
  Transmission Date: 20230113
  Serious: No
  Sender: FDA-Public Use
  Company Number: None

PATIENT
  Sex: Male

DRUGS (10)
  1. OXALIPLATIN [Suspect]
     Active Substance: OXALIPLATIN
     Indication: Colon cancer
     Dosage: 170MG Q 14 DAY IV INFUSION?
     Route: 042
  2. LEUCOVORIN [Suspect]
     Active Substance: LEUCOVORIN
     Indication: Colon cancer
     Dosage: 800MG DAY 1 IV -EVERY 14 DAYS?
     Route: 042
  3. REPATHA [Concomitant]
     Active Substance: EVOLOCUMAB
  4. SPIRONOLACTONE [Concomitant]
     Active Substance: SPIRONOLACTONE
  5. ASPIRIN [Concomitant]
     Active Substance: ASPIRIN
  6. BUMEX [Concomitant]
     Active Substance: BUMETANIDE
  7. ELIQUIS [Concomitant]
     Active Substance: APIXABAN
  8. F;OUROURACIL [Concomitant]
  9. LEVOTHYROXINE [Concomitant]
     Active Substance: LEVOTHYROXINE
  10. OXYCODONE [Concomitant]
     Active Substance: OXYCODONE

REACTIONS (1)
  - Hospice care [None]
